FAERS Safety Report 4869097-9 (Version None)
Quarter: 2005Q4

REPORT INFORMATION
  Report Type: 
  Country: None (occurrence: None)
  Receive Date: 20051227
  Receipt Date: 20051215
  Transmission Date: 20060501
  Serious: Yes (Hospitalization)
  Sender: FDA-Public Use
  Company Number: 2005-10-1762

PATIENT
  Age: 68 Year
  Sex: Female

DRUGS (5)
  1. IMDUR [Suspect]
     Indication: CARDIAC DISORDER
     Dosage: 90 MG QD ORAL
     Route: 048
     Dates: start: 20010101
  2. AVALIDE [Suspect]
     Dosage: 300 MG QD ORAL
     Route: 048
  3. SIMVASTATIN [Suspect]
  4. VITAMINS/MINERALS/DIETARY SUPPLEMENTS (NOS) [Concomitant]
  5. NORVASC [Concomitant]

REACTIONS (9)
  - ABDOMINAL PAIN UPPER [None]
  - ASTHENIA [None]
  - CEREBROVASCULAR ACCIDENT [None]
  - CHOKING [None]
  - CRYING [None]
  - FRUSTRATION [None]
  - HYPERSOMNIA [None]
  - TONGUE BITING [None]
  - TONGUE DISORDER [None]
